FAERS Safety Report 25882126 (Version 1)
Quarter: 2025Q4

REPORT INFORMATION
  Report Type: Spontaneous
  Country: EU (occurrence: EU)
  Receive Date: 20251006
  Receipt Date: 20251006
  Transmission Date: 20260117
  Serious: Yes (Hospitalization)
  Sender: JOHNSON AND JOHNSON
  Company Number: None

PATIENT
  Age: 16 Year
  Sex: Male
  Weight: 55 kg

DRUGS (2)
  1. REMICADE [Suspect]
     Active Substance: INFLIXIMAB
     Indication: Colitis ulcerative
     Dosage: 5 MG/KG, THEN EVERY 6 WEEKS FROM 05/2015 THEN 10 MG/KG FROM 06/2015, THEN EVERY 7 WEEKS FROM 10/2017
     Route: 042
     Dates: start: 20150309, end: 20180314
  2. INFLECTRA [Suspect]
     Active Substance: INFLIXIMAB-DYYB
     Indication: Colitis ulcerative
     Dosage: 5 MG/KG, THEN INCREASED TO 270 MG FROM 04/07/2018, THEN 300 MG FROM 24/10/2018, THEN SPACED EVERY 10
     Route: 042
     Dates: start: 20150309, end: 20241220

REACTIONS (1)
  - IgA nephropathy [Recovering/Resolving]

NARRATIVE: CASE EVENT DATE: 20250122
